FAERS Safety Report 21132642 (Version 2)
Quarter: 2022Q3

REPORT INFORMATION
  Report Type: Report from Study
  Country: TR (occurrence: TR)
  Receive Date: 20220726
  Receipt Date: 20220729
  Transmission Date: 20221026
  Serious: Yes (Other)
  Sender: FDA-Public Use
  Company Number: TR-NOVARTISPH-NVSC2021TR290651

PATIENT
  Age: 50 Year
  Sex: Female
  Weight: 52 kg

DRUGS (2)
  1. ALPELISIB [Suspect]
     Active Substance: ALPELISIB
     Indication: Breast cancer metastatic
     Dosage: 300 MG, QD (ONE DAY)
     Route: 065
     Dates: start: 20210901
  2. ALPELISIB [Suspect]
     Active Substance: ALPELISIB
     Indication: PIK3CA-activated mutation
     Dosage: 200 MG, QD (TWO DAYS)
     Route: 065
     Dates: start: 20210901

REACTIONS (5)
  - Metastases to liver [Unknown]
  - Cervix carcinoma [Unknown]
  - Malignant neoplasm progression [Unknown]
  - Blood glucose increased [Recovered/Resolved]
  - Pleural effusion [Unknown]

NARRATIVE: CASE EVENT DATE: 20210908
